FAERS Safety Report 17089231 (Version 1)
Quarter: 2019Q4

REPORT INFORMATION
  Report Type: Spontaneous
  Country: DE (occurrence: DE)
  Receive Date: 20191128
  Receipt Date: 20191128
  Transmission Date: 20200122
  Serious: Yes (Other)
  Sender: FDA-Public Use
  Company Number: DE-ABBVIE-19K-062-3172642-00

PATIENT
  Sex: Male

DRUGS (2)
  1. IMBRUVICA [Suspect]
     Active Substance: IBRUTINIB
     Indication: PRODUCT USED FOR UNKNOWN INDICATION
     Route: 048
  2. IMBRUVICA [Suspect]
     Active Substance: IBRUTINIB
     Route: 048

REACTIONS (9)
  - Pneumothorax [Unknown]
  - Pneumonia [Unknown]
  - Pulmonary oedema [Unknown]
  - Faeces hard [Unknown]
  - Rash pustular [Unknown]
  - Diabetes mellitus [Unknown]
  - Eye haematoma [Unknown]
  - Blood gases normal [Recovered/Resolved]
  - Blood uric acid increased [Unknown]
